FAERS Safety Report 6020599-1 (Version None)
Quarter: 2008Q4

REPORT INFORMATION
  Report Type: 
  Country: None (occurrence: None)
  Receive Date: 20081227
  Receipt Date: 20081219
  Transmission Date: 20090506
  Serious: Yes (Other)
  Sender: FDA-Public Use
  Company Number: GB-JNJFOC-20081205313

PATIENT
  Age: 4 Decade
  Sex: Male

DRUGS (1)
  1. RISPERDAL CONSTA [Suspect]
     Indication: MANIA
     Route: 030

REACTIONS (3)
  - AGGRESSION [None]
  - AKATHISIA [None]
  - RESTLESSNESS [None]
